FAERS Safety Report 13256693 (Version 2)
Quarter: 2017Q1

REPORT INFORMATION
  Report Type: Spontaneous
  Country: AR (occurrence: AR)
  Receive Date: 20170221
  Receipt Date: 20170308
  Transmission Date: 20170428
  Serious: Yes (Hospitalization)
  Sender: FDA-Public Use
  Company Number: AR-PFIZER INC-2016403686

PATIENT
  Age: 51 Year
  Sex: Female

DRUGS (2)
  1. IBRANCE [Suspect]
     Active Substance: PALBOCICLIB
     Dosage: 100 MG, CYCLIC (3/1 SCHEME)
     Dates: end: 201701
  2. IBRANCE [Suspect]
     Active Substance: PALBOCICLIB
     Indication: BREAST CANCER METASTATIC
     Dosage: 125 MG, DAILY, SCHEME 3/1
     Dates: start: 20160720

REACTIONS (3)
  - Rib fracture [Recovering/Resolving]
  - White blood cell count decreased [Recovered/Resolved]
  - Bone decalcification [Not Recovered/Not Resolved]

NARRATIVE: CASE EVENT DATE: 201608
